FAERS Safety Report 16980439 (Version 5)
Quarter: 2020Q1

REPORT INFORMATION
  Report Type: Report from Study
  Country: US (occurrence: US)
  Receive Date: 20191031
  Receipt Date: 20200113
  Transmission Date: 20200409
  Serious: Yes (Other)
  Sender: FDA-Public Use
  Company Number: US-GLAXOSMITHKLINE-2019-TSO02365-US

PATIENT
  Sex: Female

DRUGS (3)
  1. NIRAPARIB [Suspect]
     Active Substance: NIRAPARIB
     Indication: PRODUCT USED FOR UNKNOWN INDICATION
     Dosage: 200 MG, QD
     Route: 048
     Dates: start: 20190531
  2. NIRAPARIB [Suspect]
     Active Substance: NIRAPARIB
     Dosage: 200 MG, QD
     Route: 048
     Dates: start: 20190603
  3. NIRAPARIB [Suspect]
     Active Substance: NIRAPARIB
     Dosage: 200 MG, QD
     Route: 048
     Dates: start: 20190529

REACTIONS (27)
  - Weight increased [Not Recovered/Not Resolved]
  - Peripheral coldness [Unknown]
  - Dizziness [Not Recovered/Not Resolved]
  - Nausea [Not Recovered/Not Resolved]
  - Headache [Not Recovered/Not Resolved]
  - Restless legs syndrome [Unknown]
  - Peripheral swelling [Unknown]
  - Product dose omission [Unknown]
  - Renal impairment [Unknown]
  - Glucose tolerance impaired [Unknown]
  - Constipation [Not Recovered/Not Resolved]
  - Blood pressure increased [Not Recovered/Not Resolved]
  - Neuropathy peripheral [Unknown]
  - Diabetes mellitus [Not Recovered/Not Resolved]
  - Food craving [Unknown]
  - Fall [Not Recovered/Not Resolved]
  - Polyuria [Unknown]
  - Procedural pain [Unknown]
  - Hair growth abnormal [Unknown]
  - Chest pain [Unknown]
  - Hot flush [Not Recovered/Not Resolved]
  - Anaemia [Unknown]
  - Pain in extremity [Unknown]
  - Memory impairment [Unknown]
  - Visual impairment [Unknown]
  - Balance disorder [Unknown]
  - Cardiovascular disorder [Unknown]
